FAERS Safety Report 13544270 (Version 1)
Quarter: 2017Q2

REPORT INFORMATION
  Report Type: Spontaneous
  Country: CH (occurrence: CH)
  Receive Date: 20170515
  Receipt Date: 20170515
  Transmission Date: 20170830
  Serious: Yes (Hospitalization, Congenital Anomaly)
  Sender: FDA-Public Use
  Company Number: CH-ABBVIE-17K-151-1972744-00

PATIENT
  Age: 0 Day
  Sex: Male

DRUGS (3)
  1. PREDNISONE. [Suspect]
     Active Substance: PREDNISONE
     Indication: MATERNAL EXPOSURE TIMING UNSPECIFIED
     Route: 064
  2. HUMIRA [Suspect]
     Active Substance: ADALIMUMAB
     Indication: MATERNAL EXPOSURE TIMING UNSPECIFIED
     Route: 064
  3. SALAZOPYRIN [Suspect]
     Active Substance: SULFASALAZINE
     Indication: MATERNAL EXPOSURE TIMING UNSPECIFIED
     Route: 064

REACTIONS (3)
  - Hydrocele [Not Recovered/Not Resolved]
  - Hypoglycaemia neonatal [Unknown]
  - Pyelocaliectasis [Recovering/Resolving]

NARRATIVE: CASE EVENT DATE: 20161113
